FAERS Safety Report 8552987-3 (Version None)
Quarter: 2012Q3

REPORT INFORMATION
  Report Type: 
  Country: None (occurrence: None)
  Receive Date: 20120731
  Receipt Date: 20120726
  Transmission Date: 20120928
  Serious: Yes (Death, Hospitalization)
  Sender: FDA-Public Use
  Company Number: US-ASTELLAS-2012US005996

PATIENT
  Age: 78 Year
  Sex: Female
  Weight: 40 kg

DRUGS (19)
  1. LOSARTAN POTASSIUM AND HYDROCHLOROTHIAZIDE [Concomitant]
     Indication: BLOOD PRESSURE
     Dosage: 12.5/50 MG, UID/QD
     Route: 048
  2. SPIRIVA [Concomitant]
     Indication: PRODUCT USED FOR UNKNOWN INDICATION
     Dosage: 1 DF, UID/QD
     Route: 048
  3. DASATINIB [Suspect]
     Dosage: 20 MG, UID/QD
     Route: 048
     Dates: start: 20120504, end: 20120625
  4. ATROVENT [Concomitant]
     Indication: PRODUCT USED FOR UNKNOWN INDICATION
     Dosage: 1 DF, TID
     Route: 065
  5. MEGACE [Concomitant]
     Indication: PRODUCT USED FOR UNKNOWN INDICATION
     Dosage: 1 DF, Q6 HOURS
     Route: 048
  6. ADVAIR HFA [Concomitant]
     Indication: PRODUCT USED FOR UNKNOWN INDICATION
     Dosage: 1 DF, PRN
     Route: 065
  7. ALBUTEROL [Concomitant]
     Indication: PRODUCT USED FOR UNKNOWN INDICATION
     Dosage: 1 DF, PRN
     Route: 065
  8. LEVOTHYROXINE SODIUM [Concomitant]
     Indication: THYROID THERAPY
     Dosage: 125 UG, UID/QD
     Route: 048
  9. BENZONATATE [Concomitant]
     Indication: COUGH
     Dosage: 100 MG, TID, PRN
     Route: 048
  10. GEMFIBROZIL [Concomitant]
     Indication: DIABETES MELLITUS
     Dosage: 600 MG, BID
     Route: 048
  11. ZOFRAN [Concomitant]
     Indication: NAUSEA
     Dosage: 8 MG, Q6 HOURS, PRN
     Route: 048
  12. ATORVASTATIN CALCIUM [Concomitant]
     Indication: BLOOD CHOLESTEROL
     Dosage: 20 MG, UID/QD
     Route: 048
  13. IRON [Concomitant]
     Indication: PRODUCT USED FOR UNKNOWN INDICATION
     Dosage: 325 MG, BID
     Route: 048
  14. DASATINIB [Suspect]
     Indication: NON-SMALL CELL LUNG CANCER
     Dosage: 50 MG, UID/QD
     Route: 048
     Dates: start: 20120504, end: 20120625
  15. XOPENEX [Concomitant]
     Indication: PRODUCT USED FOR UNKNOWN INDICATION
     Dosage: 1 DF, TID
     Route: 065
  16. ZOFRAN [Concomitant]
     Indication: VOMITING
  17. ERLOTINIB HYDROCHLORIDE [Suspect]
     Indication: NON-SMALL CELL LUNG CANCER
     Dosage: 150 MG, UID/QD
     Route: 048
     Dates: start: 20120504, end: 20120625
  18. METFORMIN HYDROCHLORIDE [Concomitant]
     Indication: DIABETES MELLITUS
     Dosage: 1000 MG, BID
     Route: 048
  19. XYLOXYLIN [Concomitant]
     Indication: OROPHARYNGEAL PAIN
     Dosage: 15 ML, AC AND QHS
     Route: 048

REACTIONS (8)
  - MULTI-ORGAN FAILURE [None]
  - MENTAL STATUS CHANGES [None]
  - ENTEROCOLITIS BACTERIAL [None]
  - BACTERIAL SEPSIS [None]
  - URINARY TRACT INFECTION BACTERIAL [None]
  - COMA [None]
  - ESCHERICHIA INFECTION [None]
  - HYPONATRAEMIA [None]
